FAERS Safety Report 25457417 (Version 1)
Quarter: 2025Q2

REPORT INFORMATION
  Report Type: Report from Study
  Country: US (occurrence: US)
  Receive Date: 20250619
  Receipt Date: 20250619
  Transmission Date: 20250717
  Serious: Yes (Hospitalization, Other)
  Sender: ELI LILLY AND COMPANY
  Company Number: US-ELI_LILLY_AND_COMPANY-US202504024764

PATIENT
  Age: 65 Year
  Sex: Male

DRUGS (1)
  1. TIRZEPATIDE [Suspect]
     Active Substance: TIRZEPATIDE
     Indication: Product used for unknown indication
     Route: 065

REACTIONS (15)
  - Facial pain [Unknown]
  - Swelling face [Unknown]
  - Tooth infection [Unknown]
  - Sleep disorder due to general medical condition, insomnia type [Unknown]
  - Feeding disorder [Unknown]
  - Headache [Unknown]
  - Feeling abnormal [Unknown]
  - Back disorder [Unknown]
  - Back pain [Unknown]
  - Fatigue [Unknown]
  - Malaise [Unknown]
  - Gastrooesophageal reflux disease [Unknown]
  - Constipation [Unknown]
  - Dyspepsia [Unknown]
  - Vomiting [Unknown]
